FAERS Safety Report 8896094 (Version 1)
Quarter: 2012Q4

REPORT INFORMATION
  Report Type: 
  Country: US (occurrence: US)
  Receive Date: 20121108
  Receipt Date: 20121108
  Transmission Date: 20130627
  Serious: Yes (Other)
  Sender: FDA-Public Use
  Company Number: US-BAYER-2012-115057

PATIENT
  Age: 80 Year
  Sex: Female
  Weight: 61.68 kg

DRUGS (9)
  1. BAYER GENUINE ASPIRIN ORIGINAL STRENGTH [Suspect]
     Indication: MYOCARDIAL INFARCT PROPHYLAXIS
     Dosage: 1 DF, QD with food
     Route: 048
     Dates: start: 201002
  2. PLAVIX [Interacting]
  3. LEVOTHYROXINE [Concomitant]
  4. EVISTA [RALOXIFENE HYDROCHLORIDE] [Concomitant]
  5. CRESTOR [Concomitant]
  6. BENICAR HCT [Concomitant]
  7. METOPROLOL TARTRATE [Concomitant]
  8. MULTIVITAMIN [Concomitant]
  9. INFLUENZA VACCINE [Concomitant]
     Dosage: UNK
     Dates: start: 20120823, end: 20120823

REACTIONS (4)
  - Contusion [Not Recovered/Not Resolved]
  - Injection site haemorrhage [Recovered/Resolved]
  - Gastric ulcer [Recovered/Resolved]
  - Drug interaction [None]
